FAERS Safety Report 7581357-X (Version None)
Quarter: 2011Q2

REPORT INFORMATION
  Report Type: 
  Country: None (occurrence: None)
  Receive Date: 20110629
  Receipt Date: 20110617
  Transmission Date: 20111010
  Serious: No
  Sender: FDA-Public Use
  Company Number: FR-GENZYME-MOZO-1000536

PATIENT

DRUGS (3)
  1. MOZOBIL [Suspect]
     Indication: HAEMATOPOIETIC STEM CELL MOBILISATION
     Dosage: 240 MCG/KG, UNK
     Route: 058
     Dates: start: 20110615, end: 20110615
  2. MOZOBIL [Suspect]
     Indication: NEUROBLASTOMA
     Dosage: 240 MCG/KG, UNK
     Route: 058
     Dates: start: 20110616, end: 20110616
  3. NEUPOGEN [Concomitant]
     Indication: PRODUCT USED FOR UNKNOWN INDICATION
     Route: 065

REACTIONS (3)
  - CHEST PAIN [None]
  - HAEMOLYSIS [None]
  - BACK PAIN [None]
